FAERS Safety Report 6836230-9 (Version None)
Quarter: 2010Q3

REPORT INFORMATION
  Report Type: 
  Country: None (occurrence: None)
  Receive Date: 20100713
  Receipt Date: 20100702
  Transmission Date: 20110219
  Serious: Yes (Other)
  Sender: FDA-Public Use
  Company Number: US-SANOFI-AVENTIS-2010SA040012

PATIENT
  Age: 81 Year
  Sex: Female
  Weight: 68.1 kg

DRUGS (2)
  1. AMBIEN [Suspect]
     Indication: SLEEP DISORDER
     Dosage: SPLIT TABLETS TAKING ONE THIRD OF THE TABLET AT A TIME
     Route: 048
     Dates: start: 19980101, end: 20100501
  2. THYROID TAB [Concomitant]

REACTIONS (3)
  - ATRIAL FIBRILLATION [None]
  - PRODUCT QUALITY ISSUE [None]
  - WRONG TECHNIQUE IN DRUG USAGE PROCESS [None]
